FAERS Safety Report 9397733 (Version 1)
Quarter: 2013Q3

REPORT INFORMATION
  Report Type: Spontaneous
  Country: US (occurrence: US)
  Receive Date: 20130712
  Receipt Date: 20130712
  Transmission Date: 20140515
  Serious: Yes (Hospitalization)
  Sender: FDA-Public Use
  Company Number: US-SANOFI-AVENTIS-2013SA068511

PATIENT
  Sex: Male

DRUGS (9)
  1. DIABETA [Suspect]
     Indication: TYPE 2 DIABETES MELLITUS
  2. LANTUS SOLOSTAR [Suspect]
     Indication: TYPE 2 DIABETES MELLITUS
  3. SOLOSTAR [Suspect]
     Indication: TYPE 2 DIABETES MELLITUS
  4. PLAVIX [Suspect]
  5. GLUCOPHAGE [Concomitant]
  6. CLONIDINE [Concomitant]
  7. ACCUPRIL [Concomitant]
  8. HYDROCHLOROTHIAZIDE [Concomitant]
  9. SPIRONOLACTONE [Concomitant]

REACTIONS (5)
  - Myocardial infarction [Unknown]
  - Blood pressure increased [Not Recovered/Not Resolved]
  - Nausea [Unknown]
  - Asthenia [Unknown]
  - Blood glucose increased [Not Recovered/Not Resolved]
